FAERS Safety Report 6917095-3 (Version None)
Quarter: 2010Q3

REPORT INFORMATION
  Report Type: 
  Country: None (occurrence: None)
  Receive Date: 20100810
  Receipt Date: 20100729
  Transmission Date: 20110219
  Serious: Yes (Disabling, Other)
  Sender: FDA-Public Use
  Company Number: B0661460A

PATIENT
  Sex: Female

DRUGS (8)
  1. REQUIP [Suspect]
     Indication: PARKINSON'S DISEASE
     Dosage: .25MG FOUR TIMES PER DAY
     Route: 048
     Dates: start: 20100409, end: 20100422
  2. REQUIP [Suspect]
     Dosage: 1.5MG PER DAY
     Route: 048
     Dates: start: 20100423, end: 20100510
  3. REQUIP [Suspect]
     Dosage: 2MG PER DAY
     Route: 048
     Dates: start: 20100511, end: 20100611
  4. CARBIDOPA AND LEVODOPA [Concomitant]
     Indication: PARKINSON'S DISEASE
     Dosage: 300MG PER DAY
     Route: 048
     Dates: start: 20100326, end: 20100630
  5. UNKNOWN [Concomitant]
     Indication: GASTRIC DISORDER
     Dosage: 30MG PER DAY
     Route: 048
     Dates: start: 20100326, end: 20100630
  6. UNKNOWN MEDICATION [Concomitant]
     Indication: POLLAKIURIA
     Dosage: .1MG PER DAY
     Route: 048
     Dates: start: 20100409, end: 20100630
  7. HERBESSER R [Concomitant]
     Indication: HYPERTENSION
     Dosage: 100MG PER DAY
     Route: 048
     Dates: start: 20100409, end: 20100630
  8. EVISTA [Concomitant]
     Indication: OSTEOPOROSIS
     Dosage: 100MG PER DAY
     Route: 048
     Dates: start: 20100409, end: 20100630

REACTIONS (3)
  - MOTION SICKNESS [None]
  - SOMNOLENCE [None]
  - SUDDEN ONSET OF SLEEP [None]
